FAERS Safety Report 7559184-9 (Version None)
Quarter: 2011Q2

REPORT INFORMATION
  Report Type: 
  Country: None (occurrence: None)
  Receive Date: 20110621
  Receipt Date: 20110616
  Transmission Date: 20111010
  Serious: Yes (Other)
  Sender: FDA-Public Use
  Company Number: JP-PFIZER INC-2011132885

PATIENT
  Age: 80 Year
  Sex: Male

DRUGS (3)
  1. LYRICA [Suspect]
     Dosage: 50 MG, 1X/DAY BEFORE BEDTIME
     Route: 048
     Dates: start: 20110511
  2. LYRICA [Suspect]
     Dosage: 75 MG, 1X/DAY
     Route: 048
  3. LYRICA [Suspect]
     Dosage: 25 MG, 1X/DAY AT BEDTIME
     Route: 048
     Dates: end: 20110616

REACTIONS (3)
  - BLOOD ALKALINE PHOSPHATASE INCREASED [None]
  - FALL [None]
  - SOMNOLENCE [None]
